FAERS Safety Report 7959302-4 (Version None)
Quarter: 2011Q4

REPORT INFORMATION
  Report Type: 
  Country: None (occurrence: None)
  Receive Date: 20111206
  Receipt Date: 20111122
  Transmission Date: 20120403
  Serious: Yes (Hospitalization)
  Sender: FDA-Public Use
  Company Number: IT-AMGEN-UK330442

PATIENT
  Sex: Female

DRUGS (4)
  1. RADIATION THERAPY [Concomitant]
     Dosage: UNK UNK, UNK
     Route: 065
  2. FLUOROURACIL [Concomitant]
     Dosage: 2695 MG, UNK
     Route: 042
     Dates: start: 20090105, end: 20090112
  3. PANITUMUMAB [Suspect]
     Dosage: 384 MG, UNK
     Route: 042
     Dates: start: 20081222, end: 20090105
  4. OXALIPLATIN [Concomitant]
     Dosage: 103 MG, UNK
     Route: 042
     Dates: start: 20090105, end: 20090112

REACTIONS (1)
  - CLOSTRIDIUM DIFFICILE COLITIS [None]
